FAERS Safety Report 5673499-0 (Version None)
Quarter: 2008Q2

REPORT INFORMATION
  Report Type: 
  Country: None (occurrence: None)
  Receive Date: 20080225
  Receipt Date: 20071127
  Transmission Date: 20081010
  Serious: Yes (Hospitalization)
  Sender: FDA-Public Use
  Company Number: WAES 0711USA05028

PATIENT
  Age: 66 Year
  Sex: Female

DRUGS (10)
  1. ZOCOR [Suspect]
     Indication: HYPERCHOLESTEROLAEMIA
     Dosage: 80 MG/DAILY/PO
     Route: 048
     Dates: start: 20070910, end: 20070101
  2. CLONOPIN [Concomitant]
  3. COREG [Concomitant]
  4. IMDUR [Concomitant]
  5. NEXIUM [Concomitant]
  6. NORVASC [Concomitant]
  7. PLAVIX [Concomitant]
  8. ZOLOFT [Concomitant]
  9. ASPIRIN [Concomitant]
  10. GLIPIZIDE [Concomitant]

REACTIONS (1)
  - RHABDOMYOLYSIS [None]
